FAERS Safety Report 4816034-9 (Version None)
Quarter: 2005Q4

REPORT INFORMATION
  Report Type: 
  Country: None (occurrence: None)
  Receive Date: 20051026
  Receipt Date: 20051007
  Transmission Date: 20060501
  Serious: Yes (Death, Hospitalization, Other)
  Sender: FDA-Public Use
  Company Number: GBS040615126

PATIENT
  Age: 67 Year
  Sex: Female
  Weight: 47 kg

DRUGS (5)
  1. FORSTEO (TERIPARAT1IDE) [Suspect]
     Indication: OSTEOPOROSIS
     Dosage: 20 UG DAY
     Dates: start: 20040115
  2. CALCICHEW (CALCIUM CARBONATE) [Concomitant]
  3. CALCICHEW D3 FORTE [Concomitant]
  4. ACETAMINOPHEN [Concomitant]
  5. VIOXX [Concomitant]

REACTIONS (15)
  - ASTHENIA [None]
  - BONE CALLUS EXCESSIVE [None]
  - BONE SCAN ABNORMAL [None]
  - FRACTURE [None]
  - IMMUNOGLOBULINS DECREASED [None]
  - INCREASED APPETITE [None]
  - LUNG INFECTION [None]
  - MALAISE [None]
  - METASTASIS [None]
  - MUSCULOSKELETAL CHEST PAIN [None]
  - NECK PAIN [None]
  - PALLOR [None]
  - PNEUMONIA [None]
  - SHOULDER PAIN [None]
  - SWELLING [None]
